FAERS Safety Report 12210655 (Version 1)
Quarter: 2016Q1

REPORT INFORMATION
  Report Type: Spontaneous
  Country: US (occurrence: None)
  Receive Date: 20160324
  Receipt Date: 20160324
  Transmission Date: 20160526
  Serious: Yes (Disabling)
  Sender: FDA-Public Use
  Company Number: None

PATIENT
  Age: 53 Year
  Sex: Female
  Weight: 74.39 kg

DRUGS (2)
  1. LISINOPRIL. [Suspect]
     Active Substance: LISINOPRIL
     Indication: BLOOD CHOLESTEROL ABNORMAL
     Dosage: HTZ 20-12.5MG ONE TABLET EVERY DAY BY MOUTH
     Route: 048
     Dates: start: 20030820, end: 20151115
  2. LOSARTAN. [Concomitant]
     Active Substance: LOSARTAN

REACTIONS (9)
  - Fatigue [None]
  - Gastrointestinal disorder [None]
  - Vomiting [None]
  - Arthralgia [None]
  - Headache [None]
  - Weight increased [None]
  - Dizziness [None]
  - Malaise [None]
  - Cough [None]
